FAERS Safety Report 15669480 (Version 4)
Quarter: 2019Q1

REPORT INFORMATION
  Report Type: Report from Study
  Country: FR (occurrence: FR)
  Receive Date: 20181129
  Receipt Date: 20190201
  Transmission Date: 20190417
  Serious: Yes (Death)
  Sender: FDA-Public Use
  Company Number: FR-GLAXOSMITHKLINE-FR2018GSK194325

PATIENT
  Sex: Male

DRUGS (5)
  1. VENTOLINE [Concomitant]
     Active Substance: ALBUTEROL
     Indication: ASTHMA
     Dosage: UNK
  2. KETEC 400 [Concomitant]
     Indication: ASTHMA
     Dosage: 2 UNK, UNK
     Dates: start: 201611
  3. MEPOLIZUMAB [Suspect]
     Active Substance: MEPOLIZUMAB
     Indication: ASTHMA
     Dosage: 1 UNK, Z
     Route: 042
     Dates: start: 20160301, end: 20161128
  4. SPIRIVA [Concomitant]
     Active Substance: TIOTROPIUM BROMIDE MONOHYDRATE
     Indication: ASTHMA
     Dosage: 1 UNK, 1D
  5. SOLUPRED [Concomitant]
     Indication: ASTHMA
     Dosage: UNK
     Dates: start: 201611

REACTIONS (1)
  - Asthma [Fatal]
